FAERS Safety Report 17285596 (Version 1)
Quarter: 2020Q1

REPORT INFORMATION
  Report Type: Report from Study
  Country: CO (occurrence: CO)
  Receive Date: 20200117
  Receipt Date: 20200117
  Transmission Date: 20200409
  Serious: Yes (Hospitalization, Other)
  Sender: FDA-Public Use
  Company Number: NVSC2019CO084697

PATIENT
  Age: 65 Year
  Sex: Male
  Weight: 56 kg

DRUGS (6)
  1. VOTRIENT [Suspect]
     Active Substance: PAZOPANIB HYDROCHLORIDE
     Indication: METASTATIC RENAL CELL CARCINOMA
     Dosage: 800 MG (2 OF 400 MG), QD (ONCE DAILY)
     Route: 048
     Dates: start: 20190204
  2. TAMSULOSIN [Suspect]
     Active Substance: TAMSULOSIN
     Indication: PROSTATIC DISORDER
     Dosage: UNK
     Route: 065
     Dates: start: 201911
  3. EUTHYROX [Concomitant]
     Active Substance: LEVOTHYROXINE SODIUM
     Indication: THYROID DISORDER
     Dosage: 100 MG FROM MONDAY TO FRIDAY AND 50 MG SATURDAY AND SUNDAY, SINCE ONE YEAR
     Route: 048
  4. TRAMADOL. [Concomitant]
     Active Substance: TRAMADOL
     Indication: PAIN
     Dosage: UNK, PRN
     Route: 065
     Dates: start: 201912
  5. ESOMEPRAZOLE. [Concomitant]
     Active Substance: ESOMEPRAZOLE MAGNESIUM
     Indication: GASTRITIS
     Dosage: UNK, PRN SINCE 5 YEARS
     Route: 065
  6. ENOXAPARIN [Concomitant]
     Active Substance: ENOXAPARIN
     Indication: COAGULOPATHY
     Dosage: 60 MG, QD (ONCE DAILY)
     Route: 065
     Dates: start: 201803

REACTIONS (16)
  - Prostatomegaly [Unknown]
  - Metastases to lung [Unknown]
  - Diverticulum [Unknown]
  - Large intestine polyp [Unknown]
  - Renal cyst [Unknown]
  - Prostatic specific antigen increased [Unknown]
  - Blood bilirubin unconjugated increased [Unknown]
  - Renal failure [Unknown]
  - Depressed mood [Unknown]
  - Anaemia [Unknown]
  - Platelet count increased [Unknown]
  - Weight decreased [Unknown]
  - Renal neoplasm [Unknown]
  - Cyst [Unknown]
  - Hepatic lesion [Unknown]
  - Haemoglobin decreased [Unknown]

NARRATIVE: CASE EVENT DATE: 2019
